FAERS Safety Report 16809263 (Version 3)
Quarter: 2019Q4

REPORT INFORMATION
  Report Type: Spontaneous
  Country: US (occurrence: US)
  Receive Date: 20190916
  Receipt Date: 20191204
  Transmission Date: 20200122
  Serious: No
  Sender: FDA-Public Use
  Company Number: US-BRISTOL-MYERS SQUIBB COMPANY-BMS-2019-089933

PATIENT
  Sex: Male

DRUGS (1)
  1. OPDIVO [Suspect]
     Active Substance: NIVOLUMAB
     Indication: PRODUCT USED FOR UNKNOWN INDICATION
     Dosage: UNK
     Route: 065

REACTIONS (7)
  - Chest discomfort [Unknown]
  - Nausea [Unknown]
  - Malaise [Unknown]
  - Vomiting [Unknown]
  - Flushing [Unknown]
  - Chills [Unknown]
  - Skin discolouration [Unknown]

NARRATIVE: CASE EVENT DATE: 20190808
